FAERS Safety Report 4358787-2 (Version None)
Quarter: 2004Q2

REPORT INFORMATION
  Report Type: 
  Country: None (occurrence: None)
  Receive Date: 20040511
  Receipt Date: 20040427
  Transmission Date: 20050107
  Serious: Yes (Death)
  Sender: FDA-Public Use
  Company Number: T03-USA-01084-01

PATIENT
  Age: 91 Year
  Sex: Male
  Weight: 88.905 kg

DRUGS (11)
  1. MEMANTINE (OPEN LABEL, PHASE B) (MEMANTINE) [Suspect]
     Indication: DEMENTIA ALZHEIMER'S TYPE
     Dosage: 200 MG QD PO
     Route: 048
     Dates: start: 20020405, end: 20020823
  2. MEMANTINE (UNBLINDED, PHASE A) (MEMANTINE) [Suspect]
     Indication: DEMENTIA ALZHEIMER'S TYPE
     Dosage: 10 MG QD PO
     Route: 048
     Dates: start: 20020312, end: 20020318
  3. MEMANTINE (UNBLINDED, PHASE A) (MEMANTINE) [Suspect]
     Indication: DEMENTIA ALZHEIMER'S TYPE
     Dosage: 20 MG QD PO
     Route: 048
     Dates: start: 20020319, end: 20020404
  4. DONEPEZIL HCL [Concomitant]
  5. TRIAMTERENE [Concomitant]
  6. OXYBUTYNIN [Concomitant]
  7. DOXAZOSIN MESYLATE (DOXAZOSIN MESILATE) [Concomitant]
  8. VITAMIN E [Concomitant]
  9. ASPIRIN (ACETYSALICYLIC ACID) [Concomitant]
  10. TIMOLOL MALEATE [Concomitant]
  11. BRIMONIDINE TARTRATE [Concomitant]

REACTIONS (4)
  - CARDIAC FAILURE CONGESTIVE [None]
  - FAILURE TO THRIVE [None]
  - GENERAL PHYSICAL HEALTH DETERIORATION [None]
  - TRANSIENT ISCHAEMIC ATTACK [None]
